FAERS Safety Report 9817578 (Version 2)
Quarter: 2014Q1

REPORT INFORMATION
  Report Type: Spontaneous
  Country: US (occurrence: None)
  Receive Date: 20131223
  Receipt Date: 20140228
  Transmission Date: 20141002
  Serious: Yes (Other)
  Sender: FDA-Public Use
  Company Number: 222815

PATIENT
  Age: 61 Year
  Sex: Female

DRUGS (6)
  1. PICATO [Suspect]
     Indication: ACTINIC KERATOSIS
     Route: 061
     Dates: start: 20130722
  2. PICATO [Suspect]
     Indication: SKIN EXFOLIATION
     Route: 061
     Dates: start: 20130722
  3. EFFEXOR (VENLAFAXINE HYDROCHLORIDE) UNKNOWN [Concomitant]
  4. ALDACTONE (SPIRONOLACTONE) [Concomitant]
  5. ACIPHEX (RABEPRAZOLE SODIUM) [Concomitant]
  6. TAZORAC 0.1% (TAZAROTENE) [Concomitant]

REACTIONS (8)
  - Application site erythema [None]
  - Application site pain [None]
  - Application site pain [None]
  - Application site erythema [None]
  - Application site papules [None]
  - Oral herpes [None]
  - Drug administered at inappropriate site [None]
  - Off label use [None]
